FAERS Safety Report 7518882-3 (Version None)
Quarter: 2011Q2

REPORT INFORMATION
  Report Type: 
  Country: None (occurrence: None)
  Receive Date: 20110523
  Receipt Date: 20110513
  Transmission Date: 20111010
  Serious: Yes (Death)
  Sender: FDA-Public Use
  Company Number: 2011AT000158

PATIENT
  Age: 35 Year
  Sex: Male
  Weight: 140 kg

DRUGS (6)
  1. ALBUTEROL SULFATE [Suspect]
     Indication: ASTHMA
     Dosage: INH
     Route: 055
  2. SALMETEROL (SALMETEROL) [Suspect]
     Indication: ASTHMA
     Dosage: INH
     Route: 055
  3. THEOPHYLLINE [Suspect]
     Indication: HYPERSENSITIVITY
  4. FLUTICASONE PROPIONATE [Suspect]
     Indication: ASTHMA
     Dosage: INH
     Route: 055
  5. OMALIZUMAB (OMALIZUMAB) [Suspect]
     Indication: ASTHMA
     Dates: start: 20080101
  6. PREDNISOLONE [Suspect]
     Indication: ASTHMA
     Dosage: 30-60 MG; PO
     Route: 048

REACTIONS (14)
  - SPINAL CORD COMPRESSION [None]
  - MOVEMENT DISORDER [None]
  - ERECTILE DYSFUNCTION [None]
  - CLONUS [None]
  - INTERVERTEBRAL DISC PROTRUSION [None]
  - PNEUMONIA [None]
  - HYPERTONIA [None]
  - MUSCULAR WEAKNESS [None]
  - HYPERREFLEXIA [None]
  - HYPOAESTHESIA [None]
  - ASTHMA [None]
  - EPIDURAL LIPOMATOSIS [None]
  - URINARY INCONTINENCE [None]
  - SENSORY DISTURBANCE [None]
